FAERS Safety Report 6215270-7 (Version None)
Quarter: 2009Q2

REPORT INFORMATION
  Report Type: 
  Country: None (occurrence: None)
  Receive Date: 20090604
  Receipt Date: 20090525
  Transmission Date: 20091009
  Serious: Yes (Other)
  Sender: FDA-Public Use
  Company Number: CA-SANOFI-SYNTHELABO-A01200905474

PATIENT
  Age: 57 Year
  Sex: Male

DRUGS (2)
  1. XATRAL [Suspect]
     Indication: BENIGN PROSTATIC HYPERPLASIA
     Route: 048
     Dates: start: 20090521, end: 20090521
  2. XATRAL [Suspect]
     Route: 048
     Dates: start: 20090524, end: 20090524

REACTIONS (1)
  - ATRIAL FIBRILLATION [None]
